FAERS Safety Report 4863931-4 (Version None)
Quarter: 2005Q4

REPORT INFORMATION
  Report Type: 
  Country: None (occurrence: None)
  Receive Date: 20051219
  Receipt Date: 20051212
  Transmission Date: 20060501
  Serious: Yes (Life-Threatening, Hospitalization, Disabling)
  Sender: FDA-Public Use
  Company Number: 2004-122901-NL

PATIENT
  Age: 30 Year
  Sex: Female

DRUGS (5)
  1. MIRTAZAPINE [Suspect]
     Indication: DEPRESSION
     Dosage: 45 MG QD ORAL
     Route: 048
     Dates: start: 20041104, end: 20041125
  2. FLUTICASONE [Concomitant]
  3. ETHINYL ESTRADIOL TAB [Concomitant]
  4. BUDESONIDE [Concomitant]
  5. FLUCONAZOLE [Concomitant]

REACTIONS (6)
  - AMNESIA [None]
  - BRAIN HYPOXIA [None]
  - CARDIAC ARREST [None]
  - CARDIOMYOPATHY [None]
  - CEREBRAL ISCHAEMIA [None]
  - VENTRICULAR FIBRILLATION [None]
